FAERS Safety Report 9697335 (Version 1)
Quarter: 2013Q4

REPORT INFORMATION
  Report Type: Spontaneous
  Country: GB (occurrence: GB)
  Receive Date: 20131120
  Receipt Date: 20131120
  Transmission Date: 20140711
  Serious: Yes (Other)
  Sender: FDA-Public Use
  Company Number: GB-AMGEN-GBRSP2013081407

PATIENT
  Sex: 0

DRUGS (5)
  1. NEULASTA [Suspect]
     Indication: PRODUCT USED FOR UNKNOWN INDICATION
     Dosage: UNK
     Route: 065
  2. VINCRISTINE [Concomitant]
     Indication: SARCOMA
     Dosage: UNK
  3. IFOSFAMIDE [Concomitant]
     Indication: SARCOMA
     Dosage: UNK
  4. DOXORUBICIN [Concomitant]
     Indication: SARCOMA
     Dosage: UNK
  5. ETOPOSIDE [Concomitant]
     Indication: SARCOMA
     Dosage: UNK

REACTIONS (1)
  - Neutropenic sepsis [Unknown]
